FAERS Safety Report 13178028 (Version 1)
Quarter: 2017Q1

REPORT INFORMATION
  Report Type: Spontaneous
  Country: US (occurrence: US)
  Receive Date: 20170201
  Receipt Date: 20170201
  Transmission Date: 20170428
  Serious: No
  Sender: FDA-Public Use
  Company Number: None

PATIENT
  Age: 62 Year
  Sex: Female
  Weight: 97.61 kg

DRUGS (1)
  1. INDOMETHACIN. [Suspect]
     Active Substance: INDOMETHACIN
     Indication: ARTHRALGIA
     Route: 048
     Dates: start: 20161116, end: 20170130

REACTIONS (4)
  - Gastrointestinal disorder [None]
  - Gastrooesophageal reflux disease [None]
  - Intentional product use issue [None]
  - Nausea [None]

NARRATIVE: CASE EVENT DATE: 20161207
